FAERS Safety Report 10659873 (Version 1)
Quarter: 2014Q4

REPORT INFORMATION
  Report Type: Spontaneous
  Country: US (occurrence: US)
  Receive Date: 20141217
  Receipt Date: 20141217
  Transmission Date: 20150529
  Serious: No
  Sender: FDA-Public Use
  Company Number: US-GLAXOSMITHKLINE-A1078986A

PATIENT

DRUGS (1)
  1. VOTRIENT [Suspect]
     Active Substance: PAZOPANIB HYDROCHLORIDE
     Indication: GASTRIC CANCER
     Dosage: 200 MG TABLET, 1 TABLET TWICE DAILY
     Route: 048
     Dates: start: 20140305

REACTIONS (1)
  - Head discomfort [Unknown]

NARRATIVE: CASE EVENT DATE: 20140617
